FAERS Safety Report 7330338-X (Version None)
Quarter: 2011Q1

REPORT INFORMATION
  Report Type: 
  Country: None (occurrence: None)
  Receive Date: 20110304
  Receipt Date: 20110221
  Transmission Date: 20110831
  Serious: Yes (Hospitalization)
  Sender: FDA-Public Use
  Company Number: US-BIOGENIDEC-2010BI044679

PATIENT
  Age: 60 Year
  Sex: Female
  Weight: 90 kg

DRUGS (2)
  1. CYMBALTA [Concomitant]
     Indication: FIBROMYALGIA
     Dates: start: 20040101
  2. TYSABRI [Suspect]
     Indication: MULTIPLE SCLEROSIS
     Route: 042
     Dates: start: 20101206

REACTIONS (15)
  - PERICARDIAL EFFUSION [None]
  - BLOOD TEST ABNORMAL [None]
  - PHOTOPHOBIA [None]
  - STRESS [None]
  - EYE SWELLING [None]
  - BLOOD POTASSIUM DECREASED [None]
  - DRUG INEFFECTIVE [None]
  - FALL [None]
  - DIPLOPIA [None]
  - EYE DISORDER [None]
  - HYPERSENSITIVITY [None]
  - BALANCE DISORDER [None]
  - VISUAL IMPAIRMENT [None]
  - FATIGUE [None]
  - EYE PAIN [None]
